FAERS Safety Report 16139261 (Version 2)
Quarter: 2019Q3

REPORT INFORMATION
  Report Type: Spontaneous
  Country: IN (occurrence: IN)
  Receive Date: 20190401
  Receipt Date: 20190718
  Transmission Date: 20191004
  Serious: Yes (Hospitalization, Other)
  Sender: FDA-Public Use
  Company Number: IN-SUN PHARMACEUTICAL INDUSTRIES LTD-2019R1-203509

PATIENT
  Age: 50 Year
  Sex: Female

DRUGS (1)
  1. ALLOPURINOL. [Suspect]
     Active Substance: ALLOPURINOL
     Indication: ARTHRALGIA
     Dosage: UNK
     Route: 065

REACTIONS (3)
  - Toxic epidermal necrolysis [Recovering/Resolving]
  - Stevens-Johnson syndrome [Recovering/Resolving]
  - Self-medication [Unknown]
